FAERS Safety Report 12462555 (Version 1)
Quarter: 2016Q2

REPORT INFORMATION
  Report Type: Spontaneous
  Country: CN (occurrence: CN)
  Receive Date: 20160614
  Receipt Date: 20160614
  Transmission Date: 20160815
  Serious: Yes (Other)
  Sender: FDA-Public Use
  Company Number: CN-ROCHE-1774624

PATIENT
  Age: 70 Year
  Sex: Male

DRUGS (7)
  1. TROPICAMIDE. [Concomitant]
     Active Substance: TROPICAMIDE
     Dosage: EYE DROPS
     Route: 065
  2. LUCENTIS [Suspect]
     Active Substance: RANIBIZUMAB
     Indication: POLYPOIDAL CHOROIDAL VASCULOPATHY
     Dosage: UNK
     Route: 031
  3. LEVOFLOXACIN. [Concomitant]
     Active Substance: LEVOFLOXACIN
     Dosage: EYE DROPS
     Route: 065
  4. DEXAMETHASONE OPHTHALMIC OINTMENT [Concomitant]
  5. TOBRAMYCIN OPHTHALMIC OINTMENT [Concomitant]
  6. VISUDYNE [Suspect]
     Active Substance: VERTEPORFIN
     Indication: POLYPOIDAL CHOROIDAL VASCULOPATHY
     Dosage: UNK
     Route: 031
  7. SODIUM CHLORIDE. [Concomitant]
     Active Substance: SODIUM CHLORIDE
     Dosage: EYE DROPS
     Route: 065

REACTIONS (1)
  - Retinal haemorrhage [Recovering/Resolving]
